FAERS Safety Report 7163600-4 (Version None)
Quarter: 2010Q4

REPORT INFORMATION
  Report Type: 
  Country: None (occurrence: None)
  Receive Date: 20101215
  Receipt Date: 20100514
  Transmission Date: 20110411
  Serious: Yes (Other)
  Sender: FDA-Public Use
  Company Number: US-PFIZER INC-2010061793

PATIENT
  Sex: Female
  Weight: 67.12 kg

DRUGS (15)
  1. LYRICA [Suspect]
     Indication: HERPES ZOSTER
     Dosage: 100 MG, 2X/DAY
     Route: 048
     Dates: start: 20100201, end: 20100517
  2. LYRICA [Suspect]
     Indication: PAIN IN EXTREMITY
  3. LYRICA [Suspect]
     Indication: BACK PAIN
  4. SIMVASTATIN [Concomitant]
     Indication: BLOOD CHOLESTEROL INCREASED
     Dosage: 40 MG, 1X/DAY
  5. BACLOFEN [Concomitant]
     Indication: LIMB DISCOMFORT
     Dosage: 10 MG, 2X/DAY
  6. NAPROXEN [Concomitant]
     Indication: GASTRIC DISORDER
     Dosage: 500 MG, 2X/DAY
  7. BUPROPION [Concomitant]
     Indication: DEPRESSION
     Dosage: 150 MG, 2X/DAY
  8. EFFEXOR XR [Concomitant]
     Indication: DEPRESSION
     Dosage: 150 MG, 1X/DAY
  9. LORAZEPAM [Concomitant]
     Indication: NERVOUSNESS
     Dosage: 1 MG, 2X/DAY
  10. TRAMADOL [Concomitant]
     Indication: PAIN
     Dosage: 50 MG, 4X/DAY
  11. NEXIUM [Concomitant]
     Indication: GASTRIC DISORDER
     Dosage: 40 MG, 1X/DAY
  12. SUCRALFATE [Concomitant]
     Indication: GASTRIC DISORDER
     Dosage: 1 G, 2X/DAY
  13. ADVAIR [Concomitant]
     Indication: ASTHMA
     Dosage: 100/50MG, TWICE A DAY
  14. COMBIVENT [Concomitant]
     Indication: ASTHMA
     Dosage: 375 MG, AS NEEDED
  15. MULTI-VITAMINS [Concomitant]
     Dosage: UNK

REACTIONS (4)
  - FIBROMYALGIA [None]
  - HYPERSENSITIVITY [None]
  - HYPOAESTHESIA [None]
  - MOOD SWINGS [None]
